FAERS Safety Report 7897818-X (Version None)
Quarter: 2011Q4

REPORT INFORMATION
  Report Type: 
  Country: None (occurrence: None)
  Receive Date: 20111107
  Receipt Date: 20111102
  Transmission Date: 20120403
  Serious: Yes (Hospitalization)
  Sender: FDA-Public Use
  Company Number: US-BAYER-200931224GPV

PATIENT
  Age: 86 Year
  Sex: Male
  Weight: 75 kg

DRUGS (15)
  1. ALBUTEROL [Concomitant]
     Indication: CHRONIC OBSTRUCTIVE PULMONARY DISEASE
     Route: 055
     Dates: start: 20060101
  2. GLUCOSAMINE [Concomitant]
     Indication: OSTEOARTHRITIS
     Route: 048
     Dates: start: 20020101
  3. MULTIVITAMIN [Concomitant]
     Indication: SUPPLEMENTATION THERAPY
     Route: 048
  4. PREVACID [Concomitant]
     Indication: GASTROOESOPHAGEAL REFLUX DISEASE
     Route: 048
     Dates: start: 20090810, end: 20090820
  5. QUININE SULFATE [Concomitant]
     Indication: MUSCLE SPASMS
     Route: 048
     Dates: start: 20040101, end: 20090820
  6. FLUTICASONE PROPIONATE [Concomitant]
     Indication: SINUSITIS
     Dosage: 20-AUG-2009
     Route: 055
     Dates: start: 20060101, end: 20090820
  7. RANIBIZUMAB [Suspect]
     Indication: AGE-RELATED MACULAR DEGENERATION
     Dosage: 13 DOSES OF 0.5MG Q4W
     Route: 031
     Dates: start: 20080416, end: 20090317
  8. RANIBIZUMAB [Suspect]
     Dosage: 2 DOSES OF 0.5MG Q4W
     Route: 031
     Dates: start: 20090513
  9. COUMADIN [Suspect]
     Indication: ATRIAL FIBRILLATION
     Route: 048
     Dates: start: 20080709, end: 20090820
  10. ASMANEX TWISTHALER [Concomitant]
     Indication: CHRONIC OBSTRUCTIVE PULMONARY DISEASE
     Dosage: 220 ?G (DAILY DOSE), QD, RESPIRATORY
     Route: 055
     Dates: start: 20061103, end: 20090820
  11. PENICILLIN [Concomitant]
     Indication: TOOTH INFECTION
     Route: 048
     Dates: start: 20090727, end: 20090807
  12. FLOMAX [Concomitant]
     Indication: BENIGN PROSTATIC HYPERPLASIA
     Route: 048
     Dates: start: 20060101
  13. VICODIN [Concomitant]
     Indication: GOUT
     Dosage: 5/500 MG
     Route: 048
     Dates: start: 20090810, end: 20090820
  14. NAPROXEN [Suspect]
     Indication: GOUT
     Route: 048
     Dates: start: 20090810, end: 20090820
  15. ALLEGRA [Concomitant]
     Indication: SINUSITIS
     Route: 048
     Dates: start: 20050101, end: 20090820

REACTIONS (1)
  - DUODENAL ULCER HAEMORRHAGE [None]
